FAERS Safety Report 23196400 (Version 1)
Quarter: 2023Q4

REPORT INFORMATION
  Report Type: Spontaneous
  Country: None (occurrence: US)
  Receive Date: 20231117
  Receipt Date: 20231117
  Transmission Date: 20240110
  Serious: No
  Sender: FDA-Public Use
  Company Number: US-CorePharma LLC-2148395

PATIENT
  Sex: Male

DRUGS (1)
  1. CLORAZEPATE DIPOTASSIUM [Suspect]
     Active Substance: CLORAZEPATE DIPOTASSIUM
     Indication: Product used for unknown indication
     Route: 048

REACTIONS (2)
  - Poor quality product administered [Unknown]
  - Product quality issue [Unknown]
